FAERS Safety Report 8577217-8 (Version None)
Quarter: 2012Q3

REPORT INFORMATION
  Report Type: 
  Country: None (occurrence: None)
  Receive Date: 20120807
  Receipt Date: 20120730
  Transmission Date: 20120928
  Serious: Yes (Hospitalization, Other)
  Sender: FDA-Public Use
  Company Number: US-ELI_LILLY_AND_COMPANY-US201012004461

PATIENT
  Sex: Male

DRUGS (9)
  1. FORTEO [Suspect]
     Dosage: 20 UG, QD
  2. FORTEO [Suspect]
     Dosage: 20 UG, DAILY (1/D)
     Route: 065
  3. POTASSIUM [Concomitant]
     Indication: CARDIAC FAILURE CONGESTIVE
  4. FORTEO [Suspect]
     Dosage: 20 UG, QD
  5. FORTEO [Suspect]
     Dosage: 20 UG, QD
     Route: 065
  6. FORTEO [Suspect]
     Dosage: 20 UG, QD
  7. FORTEO [Suspect]
     Indication: OSTEOPOROSIS
     Dosage: 20 UG, DAILY (1/D)
     Route: 065
     Dates: end: 20120625
  8. FORTEO [Suspect]
     Dosage: 20 UG, QD
     Route: 065
  9. LASIX [Concomitant]
     Indication: CARDIAC FAILURE CONGESTIVE

REACTIONS (10)
  - RIB FRACTURE [None]
  - HYPOTENSION [None]
  - MUSCULOSKELETAL CHEST PAIN [None]
  - SPINAL PAIN [None]
  - RASH [None]
  - ROAD TRAFFIC ACCIDENT [None]
  - BACK PAIN [None]
  - HYPOACUSIS [None]
  - MYOCARDIAL INFARCTION [None]
  - DYSPNOEA [None]
